FAERS Safety Report 14305735 (Version 1)
Quarter: 2017Q4

REPORT INFORMATION
  Report Type: Spontaneous
  Country: MA (occurrence: MA)
  Receive Date: 20171219
  Receipt Date: 20171219
  Transmission Date: 20180321
  Serious: Yes (Hospitalization)
  Sender: FDA-Public Use
  Company Number: PHHY2017MA179529

PATIENT
  Age: 8 Year
  Sex: Male

DRUGS (2)
  1. IBUPROFEN. [Suspect]
     Active Substance: IBUPROFEN
     Indication: INFLUENZA LIKE ILLNESS
     Route: 065
  2. ACETAMINOPHEN. [Suspect]
     Active Substance: ACETAMINOPHEN
     Indication: INFLUENZA LIKE ILLNESS
     Route: 065

REACTIONS (12)
  - Rash [Unknown]
  - Asthenia [Unknown]
  - Hypokalaemia [Unknown]
  - Pyrexia [Unknown]
  - Cheilitis [Unknown]
  - Conjunctival hyperaemia [Unknown]
  - Toxic epidermal necrolysis [Unknown]
  - Hyponatraemia [Unknown]
  - Epidermal necrosis [Unknown]
  - Rash macular [Unknown]
  - Skin exfoliation [Unknown]
  - Genital labial adhesions [Unknown]
